FAERS Safety Report 6260886-5 (Version None)
Quarter: 2009Q3

REPORT INFORMATION
  Report Type: 
  Country: None (occurrence: None)
  Receive Date: 20090707
  Receipt Date: 20090623
  Transmission Date: 20100115
  Serious: Yes (Other)
  Sender: FDA-Public Use
  Company Number: PAR_03061_2009

PATIENT
  Age: 28 Year
  Sex: Female

DRUGS (4)
  1. IBUPROFEN [Suspect]
     Indication: PAIN
     Dosage: 600 MG 1X,
     Dates: start: 20090517, end: 20090517
  2. ULTRACAIN DS (ULTRACAIN D-S FORTE - EPINEPHRINE/ARTICAINE) NOT SPECIFI [Suspect]
     Indication: DENTAL OPERATION
     Dosage: 1.2 ML;
     Dates: start: 20090515
  3. KEPPRA [Concomitant]
  4. LAMICTAL [Concomitant]

REACTIONS (4)
  - ANXIETY [None]
  - PALPITATIONS [None]
  - RESTLESSNESS [None]
  - TREMOR [None]
